FAERS Safety Report 23193588 (Version 4)
Quarter: 2024Q1

REPORT INFORMATION
  Report Type: Spontaneous
  Country: ES (occurrence: None)
  Receive Date: 20231116
  Receipt Date: 20240306
  Transmission Date: 20240410
  Serious: Yes (Hospitalization, Other)
  Sender: FDA-Public Use
  Company Number: ES-ROCHE-3454832

PATIENT
  Age: 76 Year
  Sex: Female

DRUGS (4)
  1. TOCILIZUMAB [Suspect]
     Active Substance: TOCILIZUMAB
     Indication: Renal amyloidosis
     Route: 058
     Dates: start: 202009, end: 202009
  2. TOCILIZUMAB [Suspect]
     Active Substance: TOCILIZUMAB
     Indication: Granuloma
     Route: 058
     Dates: start: 20201221, end: 202103
  3. TOCILIZUMAB [Suspect]
     Active Substance: TOCILIZUMAB
     Route: 058
     Dates: start: 20210625
  4. PREDNISONE [Concomitant]
     Active Substance: PREDNISONE

REACTIONS (5)
  - Bladder transitional cell carcinoma [Unknown]
  - Off label use [Unknown]
  - Thrombocytopenia [Unknown]
  - Haematuria [Unknown]
  - Cytology abnormal [Unknown]
